FAERS Safety Report 17737341 (Version 2)
Quarter: 2020Q2

REPORT INFORMATION
  Report Type: Spontaneous
  Country: FR (occurrence: FR)
  Receive Date: 20200501
  Receipt Date: 20200501
  Transmission Date: 20200714
  Serious: Yes (Hospitalization)
  Sender: FDA-Public Use
  Company Number: FR-CANTON LABORATORIES, LLC-2083435

PATIENT
  Age: 67 Year
  Sex: Male

DRUGS (1)
  1. NAPROSYN [Suspect]
     Active Substance: NAPROXEN
     Indication: PROSTATIC PAIN
     Route: 048
     Dates: start: 20190821, end: 20190824

REACTIONS (1)
  - Prostatic abscess [Recovering/Resolving]

NARRATIVE: CASE EVENT DATE: 20190824
